FAERS Safety Report 9829697 (Version 2)
Quarter: 2025Q2

REPORT INFORMATION
  Report Type: Spontaneous
  Country: FR (occurrence: FR)
  Receive Date: 20140120
  Receipt Date: 20250530
  Transmission Date: 20250717
  Serious: Yes (Life-Threatening, Other)
  Sender: MERCK SHARP & DOHME LLC
  Company Number: None

PATIENT
  Age: 3 Day
  Sex: Female
  Weight: 2 kg

DRUGS (1)
  1. DIAZOXIDE [Suspect]
     Active Substance: DIAZOXIDE
     Indication: Hyperinsulinism
     Dosage: DOSE DESCRIPTION : 10 MG, TID?DAILY DOSE : 30 MILLIGRAM?REGIMEN DOSE : 150  MILLIGRAM
     Route: 048
     Dates: start: 20130923, end: 20130927

REACTIONS (1)
  - Necrotising colitis [Recovered/Resolved]

NARRATIVE: CASE EVENT DATE: 20130926
